FAERS Safety Report 5271099-8 (Version None)
Quarter: 2007Q1

REPORT INFORMATION
  Report Type: 
  Country: None (occurrence: None)
  Receive Date: 20070321
  Receipt Date: 20070313
  Transmission Date: 20070707
  Serious: Yes (Disabling)
  Sender: FDA-Public Use
  Company Number: GB-GLAXOSMITHKLINE-B0462826A

PATIENT
  Age: 28 Year
  Sex: Male

DRUGS (1)
  1. ZYBAN [Suspect]
     Dosage: 15MG PER DAY
     Route: 048
     Dates: start: 20070212, end: 20070226

REACTIONS (3)
  - DEPRESSED MOOD [None]
  - DISSOCIATION [None]
  - DISTURBANCE IN ATTENTION [None]
